FAERS Safety Report 8579560-5 (Version None)
Quarter: 2012Q3

REPORT INFORMATION
  Report Type: 
  Country: None (occurrence: None)
  Receive Date: 20120808
  Receipt Date: 20120726
  Transmission Date: 20120928
  Serious: Yes (Hospitalization)
  Sender: FDA-Public Use
  Company Number: PHHO2012US011036

PATIENT
  Sex: Male
  Weight: 110.48 kg

DRUGS (3)
  1. ILARIS [Suspect]
     Indication: CARDIOVASCULAR EVENT PROPHYLAXIS
     Dosage: BLINDED
     Route: 058
     Dates: start: 20120207, end: 20120221
  2. BLINDED NO TREATMENT RECEIVED [Suspect]
     Indication: CARDIOVASCULAR EVENT PROPHYLAXIS
     Dosage: BLINDED
     Route: 058
     Dates: start: 20120207, end: 20120221
  3. PLACEBO [Suspect]
     Indication: CARDIOVASCULAR EVENT PROPHYLAXIS
     Dosage: BLINDED
     Route: 058
     Dates: start: 20120207, end: 20120221

REACTIONS (1)
  - BLADDER NEOPLASM [None]
